FAERS Safety Report 8380080-1 (Version None)
Quarter: 2012Q2

REPORT INFORMATION
  Report Type: 
  Country: None (occurrence: None)
  Receive Date: 20120523
  Receipt Date: 20120514
  Transmission Date: 20120825
  Serious: Yes (Hospitalization)
  Sender: FDA-Public Use
  Company Number: NL-GLAXOSMITHKLINE-B0791544C

PATIENT
  Sex: Female

DRUGS (6)
  1. LOPERAMIDE [Concomitant]
     Dosage: 2MG PER DAY
     Route: 048
     Dates: start: 20120417
  2. DEXAMETHASONE SODIUM PHOSPHATE [Concomitant]
     Route: 048
     Dates: start: 20120314
  3. METOCLOPRAMIDE [Concomitant]
     Route: 048
  4. DOCETAXEL [Suspect]
     Indication: NEOPLASM MALIGNANT
     Route: 042
     Dates: start: 20120306
  5. PAZOPANIB [Suspect]
     Indication: NEOPLASM MALIGNANT
     Route: 048
     Dates: start: 20120228
  6. MOVICOLON [Concomitant]
     Dosage: 1SAC PER DAY
     Route: 048
     Dates: start: 20120307

REACTIONS (2)
  - HEPATIC ENZYME ABNORMAL [None]
  - PYREXIA [None]
